FAERS Safety Report 11089666 (Version 2)
Quarter: 2015Q3

REPORT INFORMATION
  Report Type: Spontaneous
  Country: FR (occurrence: FR)
  Receive Date: 20150505
  Receipt Date: 20150702
  Transmission Date: 20151125
  Serious: Yes (Other)
  Sender: FDA-Public Use
  Company Number: FR-ROCHE-1573096

PATIENT
  Age: 47 Year
  Sex: Female

DRUGS (8)
  1. COVERSYL [Concomitant]
     Active Substance: PERINDOPRIL
  2. ZADITEN [Concomitant]
     Active Substance: KETOTIFEN FUMARATE
  3. BRICANYL [Concomitant]
     Active Substance: TERBUTALINE SULFATE
  4. XOLAIR [Suspect]
     Active Substance: OMALIZUMAB
     Indication: ASTHMA
     Route: 065
  5. SYMBICORT [Concomitant]
     Active Substance: BUDESONIDE\FORMOTEROL FUMARATE DIHYDRATE
  6. XOLAIR [Suspect]
     Active Substance: OMALIZUMAB
     Route: 065
  7. TAVANIC [Concomitant]
     Active Substance: LEVOFLOXACIN
  8. SINGULAIR [Concomitant]
     Active Substance: MONTELUKAST SODIUM

REACTIONS (3)
  - Burning sensation [Recovering/Resolving]
  - Systemic lupus erythematosus [Recovered/Resolved]
  - Atrophic glossitis [Recovering/Resolving]

NARRATIVE: CASE EVENT DATE: 20150225
